FAERS Safety Report 7949528 (Version 3)
Quarter: 2012Q4

REPORT INFORMATION
  Report Type: 
  Country: US (occurrence: US)
  Receive Date: 20110518
  Receipt Date: 20120925
  Transmission Date: 20130627
  Serious: Yes (Hospitalization)
  Sender: FDA-Public Use
  Company Number: US-BAYER-2011-041909

PATIENT
  Age: 41 Year
  Sex: Female
  Weight: 58.96 kg

DRUGS (11)
  1. YAZ [Suspect]
     Indication: UTERINE LEIOMYOMA
     Dosage: UNK
     Route: 048
     Dates: start: 200811
  2. YAZ [Suspect]
     Indication: DYSMENORRHOEA
     Dosage: UNK
     Dates: start: 200902, end: 20090323
  3. YAZ [Suspect]
     Indication: OVARIAN CYST
  4. DOXYCYCLINE HYCLATE [DOXYCYCLINE HYCLATE] [Concomitant]
     Dosage: 100 mg, QD
     Route: 048
  5. IBUPROFEN [Concomitant]
     Dosage: 800 mg, UNK
     Route: 048
     Dates: start: 1987
  6. AMOXICILLIN TRIHYDRATE W/CLAVULANTE POTASSIUM [Concomitant]
     Dosage: 875/125 mg BID
     Route: 048
  7. DANAZOL [Concomitant]
     Dosage: 200 mg, BID
     Route: 048
  8. ANTIBIOTICS [Concomitant]
     Dosage: UNK
     Dates: start: 1987
  9. VITAMIN C [Concomitant]
  10. MULTIVITAMIN [Concomitant]
     Indication: SUPPLEMENTATION THERAPY
  11. COENZYME Q10 [Concomitant]
     Indication: SUPPLEMENTATION THERAPY

REACTIONS (12)
  - Deep vein thrombosis [None]
  - Pain in extremity [None]
  - Pain [None]
  - Vasodilatation [None]
  - Vasodilatation [None]
  - Vasodilatation [None]
  - Fatigue [None]
  - Muscle spasms [None]
  - Anxiety [None]
  - Injury [None]
  - Emotional distress [None]
  - General physical health deterioration [None]
